FAERS Safety Report 20623160 (Version 1)
Quarter: 2022Q1

REPORT INFORMATION
  Report Type: Spontaneous
  Country: US (occurrence: US)
  Receive Date: 20220322
  Receipt Date: 20220322
  Transmission Date: 20220424
  Serious: No
  Sender: FDA-Public Use
  Company Number: US-ORGANON-O2203USA001116

PATIENT
  Age: 19 Year
  Sex: Male

DRUGS (1)
  1. REMERON [Suspect]
     Active Substance: MIRTAZAPINE
     Indication: Generalised tonic-clonic seizure
     Dosage: 15 MILLIGRAM
     Route: 048

REACTIONS (1)
  - Product use in unapproved indication [Unknown]
